FAERS Safety Report 12478150 (Version 3)
Quarter: 2016Q3

REPORT INFORMATION
  Report Type: Spontaneous
  Country: JP (occurrence: JP)
  Receive Date: 20160617
  Receipt Date: 20160714
  Transmission Date: 20161109
  Serious: Yes (Other)
  Sender: FDA-Public Use
  Company Number: JP-009507513-1606JPN005001

PATIENT
  Age: 80 Year
  Sex: Male

DRUGS (1)
  1. INTRON A [Suspect]
     Active Substance: INTERFERON ALFA-2B
     Indication: CONJUNCTIVAL MELANOMA
     Dosage: DOSE:100X10^4 IU/ML, FREQUENCY: THREE TIMES A DAY, TOTAL DAILY DOSE UNKNOWN
     Route: 047

REACTIONS (3)
  - Corneal epithelium defect [Recovered/Resolved]
  - Off label use [Unknown]
  - Corneal thinning [Recovering/Resolving]

NARRATIVE: CASE EVENT DATE: 201405
